FAERS Safety Report 5817423-6 (Version None)
Quarter: 2008Q3

REPORT INFORMATION
  Report Type: 
  Country: None (occurrence: None)
  Receive Date: 20080722
  Receipt Date: 20080710
  Transmission Date: 20090109
  Serious: Yes (Hospitalization, Other)
  Sender: FDA-Public Use
  Company Number: FR-ELI_LILLY_AND_COMPANY-FR200807001941

PATIENT
  Sex: Female

DRUGS (9)
  1. ZYPREXA [Suspect]
     Indication: PSYCHOTIC DISORDER
     Dosage: UNK, UNKNOWN
     Route: 048
  2. AUGMENTIN '125' [Concomitant]
     Indication: SIGMOIDITIS
     Dosage: UNK, UNK
     Dates: start: 20070914, end: 20070924
  3. DEPAKENE [Concomitant]
     Indication: EPILEPSY
     Route: 048
  4. DEBRIDAT [Concomitant]
     Indication: SIGMOIDITIS
     Dosage: UNK, UNK
     Route: 048
     Dates: start: 20070914, end: 20070924
  5. MOTILYO [Concomitant]
     Route: 048
  6. TIORFAN [Concomitant]
     Route: 048
  7. IMOVANE [Concomitant]
     Route: 048
  8. DIPROSONE [Concomitant]
     Indication: PSORIASIS
  9. ULTRA LEVURA [Concomitant]
     Dosage: UNK, UNK
     Route: 048
     Dates: start: 20070914, end: 20070924

REACTIONS (2)
  - DRUG ERUPTION [None]
  - RASH MACULO-PAPULAR [None]
